FAERS Safety Report 13820194 (Version 2)
Quarter: 2018Q1

REPORT INFORMATION
  Report Type: Spontaneous
  Country: US (occurrence: US)
  Receive Date: 20170801
  Receipt Date: 20180129
  Transmission Date: 20180508
  Serious: Yes (Hospitalization, Other)
  Sender: FDA-Public Use
  Company Number: HU-AUROBINDO-AUR-APL-2017-37737

PATIENT
  Age: 32 Year
  Sex: Male

DRUGS (12)
  1. CALCIUM ACETATE. [Suspect]
     Active Substance: CALCIUM ACETATE
     Dosage: 8004 UNK, UNK
  2. CALCIUM GLUCONATE. [Concomitant]
     Active Substance: CALCIUM GLUCONATE
     Indication: PROPHYLAXIS
     Dosage: 4-12 G/DAY
     Route: 042
  3. DEXTROSE. [Concomitant]
     Active Substance: DEXTROSE
     Indication: PRODUCT USED FOR UNKNOWN INDICATION
     Dosage: 2.5 % ()
     Route: 065
  4. PANTOPRAZOLE [Suspect]
     Active Substance: PANTOPRAZOLE
     Indication: GASTROOESOPHAGEAL REFLUX DISEASE
     Dosage: 40 MG, DAILY
     Route: 065
  5. CALCIUM CARBONATE. [Interacting]
     Active Substance: CALCIUM CARBONATE
     Indication: MINERAL SUPPLEMENTATION
     Dosage: 15000 MG, DAILY
     Route: 048
  6. CALCIUM CARBONATE. [Interacting]
     Active Substance: CALCIUM CARBONATE
     Indication: PROPHYLAXIS
     Dosage: 3 IN A DAY BETWEEN MEALS
  7. CALCITRIOL. [Suspect]
     Active Substance: CALCITRIOL
     Indication: MINERAL SUPPLEMENTATION
  8. PANTOPRAZOLE [Interacting]
     Active Substance: PANTOPRAZOLE
     Indication: GASTROINTESTINAL MOTILITY DISORDER
  9. DEXTROSE. [Concomitant]
     Active Substance: DEXTROSE
     Dosage: 1.5 % ()
     Route: 065
  10. PANTOPRAZOLE [Interacting]
     Active Substance: PANTOPRAZOLE
     Indication: GASTRIC HYPOMOTILITY
     Dosage: ATLEAST DAILY
     Route: 065
  11. CALCITRIOL. [Suspect]
     Active Substance: CALCITRIOL
     Indication: PROPHYLAXIS
     Dosage: 2-4 MCG/DAY
     Route: 048
  12. CALCIUM ACETATE. [Suspect]
     Active Substance: CALCIUM ACETATE
     Indication: MINERAL SUPPLEMENTATION
     Dosage: 4002 MG, DAILY
     Route: 065

REACTIONS (6)
  - Hypoaesthesia oral [Recovered/Resolved]
  - Product use issue [Unknown]
  - Hypocalcaemia [Recovered/Resolved]
  - Asthenia [Recovered/Resolved]
  - Paraesthesia [Recovered/Resolved]
  - Drug interaction [Unknown]
